FAERS Safety Report 7502079-7 (Version None)
Quarter: 2011Q2

REPORT INFORMATION
  Report Type: 
  Country: None (occurrence: None)
  Receive Date: 20110525
  Receipt Date: 20101123
  Transmission Date: 20111010
  Serious: No
  Sender: FDA-Public Use
  Company Number: A0894695A

PATIENT
  Age: 8 Year
  Sex: Female

DRUGS (3)
  1. ORAPRED [Concomitant]
  2. VENTOLIN [Suspect]
     Indication: ASTHMA
     Dosage: 6PUFF SIX TIMES PER DAY
     Route: 055
     Dates: start: 20101123
  3. CLARITIN [Concomitant]

REACTIONS (1)
  - OVERDOSE [None]
